FAERS Safety Report 4841047-0 (Version None)
Quarter: 2005Q4

REPORT INFORMATION
  Report Type: 
  Country: None (occurrence: None)
  Receive Date: 20051130
  Receipt Date: 20050906
  Transmission Date: 20060501
  Serious: Yes (Other)
  Sender: FDA-Public Use
  Company Number: US-BRISTOL-MYERS SQUIBB COMPANY-13101266

PATIENT
  Sex: Male
  Weight: 91 kg

DRUGS (2)
  1. ABILIFY [Suspect]
     Indication: BIPOLAR DISORDER
     Route: 048
     Dates: end: 20050906
  2. REMERON [Concomitant]
     Route: 048

REACTIONS (4)
  - BURNING SENSATION [None]
  - DRY MOUTH [None]
  - URINARY RETENTION [None]
  - VISION BLURRED [None]
